FAERS Safety Report 6228259-9 (Version None)
Quarter: 2009Q2

REPORT INFORMATION
  Report Type: 
  Country: None (occurrence: None)
  Receive Date: 20090612
  Receipt Date: 20090602
  Transmission Date: 20091009
  Serious: Yes (Hospitalization, Other)
  Sender: FDA-Public Use
  Company Number: PHHY2009GB00532

PATIENT
  Sex: Male

DRUGS (2)
  1. CLOZARIL [Suspect]
     Indication: SCHIZOPHRENIA
     Dosage: UNK
     Route: 048
     Dates: start: 19921008
  2. TINZAPARIN [Concomitant]

REACTIONS (7)
  - ENDOTRACHEAL INTUBATION [None]
  - GASTROINTESTINAL TUBE INSERTION [None]
  - PNEUMONIA [None]
  - PULMONARY EMBOLISM [None]
  - SEDATIVE THERAPY [None]
  - SKIN ULCER [None]
  - STAPHYLOCOCCAL BACTERAEMIA [None]
